FAERS Safety Report 7134858-2 (Version None)
Quarter: 2010Q4

REPORT INFORMATION
  Report Type: 
  Country: None (occurrence: None)
  Receive Date: 20101130
  Receipt Date: 20101130
  Transmission Date: 20110411
  Serious: Yes (Other)
  Sender: FDA-Public Use
  Company Number: None

PATIENT
  Age: 45 Year
  Sex: Female
  Weight: 61.2356 kg

DRUGS (3)
  1. MELOXICAM [Suspect]
     Indication: ARTHRALGIA
     Dosage: 15 MG 1 QD PO
     Route: 048
     Dates: start: 20101026, end: 20101122
  2. MELOXICAM [Suspect]
     Indication: MUSCULOSKELETAL STIFFNESS
     Dosage: 15 MG 1 QD PO
     Route: 048
     Dates: start: 20101026, end: 20101122
  3. MELOXICAN [Concomitant]

REACTIONS (1)
  - URTICARIA [None]
